FAERS Safety Report 15061313 (Version 1)
Quarter: 2018Q2

REPORT INFORMATION
  Report Type: Spontaneous
  Country: US (occurrence: US)
  Receive Date: 20180625
  Receipt Date: 20180625
  Transmission Date: 20180711
  Serious: No
  Sender: FDA-Public Use
  Company Number: US-ROCHE-2001746

PATIENT
  Sex: Female

DRUGS (1)
  1. XELODA [Suspect]
     Active Substance: CAPECITABINE
     Indication: NEOPLASM MALIGNANT
     Dosage: BID FOR 14 DAYS ON, 7 DAYS OFF
     Route: 048
     Dates: start: 20170814

REACTIONS (6)
  - Pain in extremity [Unknown]
  - Thinking abnormal [Unknown]
  - Abdominal discomfort [Unknown]
  - Pyrexia [Unknown]
  - Bone pain [Unknown]
  - Chills [Unknown]
